FAERS Safety Report 7971419-7 (Version None)
Quarter: 2011Q4

REPORT INFORMATION
  Report Type: 
  Country: None (occurrence: None)
  Receive Date: 20111123
  Receipt Date: 20110822
  Transmission Date: 20120403
  Serious: Yes (Other)
  Sender: FDA-Public Use
  Company Number: 1000022634

PATIENT
  Age: 69 Year
  Sex: Female

DRUGS (5)
  1. NEBULIZER NOS [Concomitant]
  2. DALIRESP [Suspect]
     Indication: CHRONIC OBSTRUCTIVE PULMONARY DISEASE
     Dosage: 500 MCG (500 MCG, 1 IN 1 D), ORAL
     Route: 048
     Dates: start: 20110701, end: 20110705
  3. SYMBICORT [Concomitant]
  4. ASMANEX TWISTHALER [Concomitant]
  5. SPIRIVA [Concomitant]

REACTIONS (2)
  - SUICIDAL IDEATION [None]
  - DIARRHOEA [None]
